FAERS Safety Report 4660579-1 (Version None)
Quarter: 2005Q2

REPORT INFORMATION
  Report Type: 
  Country: None (occurrence: None)
  Receive Date: 20050425
  Receipt Date: 20041011
  Transmission Date: 20051028
  Serious: No
  Sender: FDA-Public Use
  Company Number: US094945

PATIENT
  Age: 47 Year
  Sex: Female

DRUGS (16)
  1. SENSIPAR [Suspect]
     Indication: HYPERPARATHYROIDISM SECONDARY
     Dosage: 30 MG, 1 IN 1 DAYS, PO
     Route: 048
     Dates: start: 20040614
  2. CLARITHROMYCIN [Concomitant]
  3. SEVELAMER HCL [Concomitant]
  4. PHOSLO [Concomitant]
  5. ENALAPRIL MALEATE [Concomitant]
  6. NIFEDIPINE [Concomitant]
  7. . [Concomitant]
  8. . [Concomitant]
  9. . [Concomitant]
  10. . [Concomitant]
  11. . [Concomitant]
  12. . [Concomitant]
  13. CLONIDINE [Concomitant]
  14. NEPHRO-VITE [Concomitant]
  15. NPH INSULIN [Concomitant]
  16. INSULIN [Concomitant]

REACTIONS (1)
  - BLOOD PARATHYROID HORMONE INCREASED [None]
